FAERS Safety Report 21027708 (Version 1)
Quarter: 2022Q2

REPORT INFORMATION
  Report Type: Spontaneous
  Country: US (occurrence: US)
  Receive Date: 20220630
  Receipt Date: 20220630
  Transmission Date: 20220720
  Serious: No
  Sender: FDA-Public Use
  Company Number: US-PFIZER INC-202200908473

PATIENT
  Sex: Male

DRUGS (3)
  1. PAXLOVID [Suspect]
     Active Substance: NIRMATRELVIR\RITONAVIR
     Indication: COVID-19 treatment
     Dosage: UNK
     Dates: start: 20220613, end: 20220617
  2. OMEPRAZOLE [Concomitant]
     Active Substance: OMEPRAZOLE
     Dosage: 40 MG, DAILY
  3. ROSUVASTATIN [Concomitant]
     Active Substance: ROSUVASTATIN
     Dosage: 10 MG, DAILY (DIDN^T TAKE DURING PAXLOVID TREATMENT)
     Dates: start: 20220415, end: 20220612

REACTIONS (5)
  - Nasal congestion [Recovering/Resolving]
  - Sneezing [Recovering/Resolving]
  - Rhinorrhoea [Recovering/Resolving]
  - Pyrexia [Recovering/Resolving]
  - Infection [Recovering/Resolving]

NARRATIVE: CASE EVENT DATE: 20220623
